FAERS Safety Report 15850155 (Version 2)
Quarter: 2019Q1

REPORT INFORMATION
  Report Type: Spontaneous
  Country: US (occurrence: US)
  Receive Date: 20190121
  Receipt Date: 20190218
  Transmission Date: 20190417
  Serious: No
  Sender: FDA-Public Use
  Company Number: US-SA-2019SA014434

PATIENT
  Age: 57 Year
  Sex: Female

DRUGS (2)
  1. AMPYRA [Concomitant]
     Active Substance: DALFAMPRIDINE
  2. AUBAGIO [Suspect]
     Active Substance: TERIFLUNOMIDE
     Indication: MULTIPLE SCLEROSIS
     Dosage: 14 MG, QD
     Route: 048
     Dates: start: 20180625

REACTIONS (4)
  - Vision blurred [Not Recovered/Not Resolved]
  - Rash pruritic [Not Recovered/Not Resolved]
  - Product dose omission [Unknown]
  - Pruritus [Not Recovered/Not Resolved]
